FAERS Safety Report 24625865 (Version 1)
Quarter: 2024Q4

REPORT INFORMATION
  Report Type: Spontaneous
  Country: US (occurrence: US)
  Receive Date: 20241115
  Receipt Date: 20241115
  Transmission Date: 20250115
  Serious: No
  Sender: ANI
  Company Number: US-ANIPHARMA-2024-US-057758

PATIENT
  Age: 59 Year
  Sex: Female
  Weight: 54.43 kg

DRUGS (8)
  1. CORTICOTROPIN [Suspect]
     Active Substance: CORTICOTROPIN
     Indication: Multiple sclerosis
     Dosage: 80 UNITS INJECTED DAILY 3 WEEKS, THEN PRN
     Route: 058
     Dates: start: 20240926, end: 20241018
  2. TRAMADOL HCL 100 % POWDER [Concomitant]
     Dosage: TAKEN PRN
     Route: 048
     Dates: start: 2022
  3. SOLU-MEDROL [Concomitant]
     Active Substance: METHYLPREDNISOLONE SODIUM SUCCINATE
     Dates: end: 2023
  4. LYRICA [Concomitant]
     Active Substance: PREGABALIN
  5. LEVOFLOXACIN [Concomitant]
     Active Substance: LEVOFLOXACIN
     Dosage: UNKNOWN USE
  6. KESIMPTA PEN INJCTR [Concomitant]
     Dates: start: 202304
  7. DEXAMETHASONE SOLUTION [Concomitant]
     Dosage: CALLER DOES NOT KNOW WHEN THIS WAS USED
  8. MODAFINIL [Concomitant]
     Active Substance: MODAFINIL

REACTIONS (1)
  - Herpes zoster [Not Recovered/Not Resolved]

NARRATIVE: CASE EVENT DATE: 20241025
